FAERS Safety Report 9431815 (Version 1)
Quarter: 2013Q3

REPORT INFORMATION
  Report Type: Spontaneous
  Country: US (occurrence: US)
  Receive Date: 20130731
  Receipt Date: 20130731
  Transmission Date: 20140515
  Serious: No
  Sender: FDA-Public Use
  Company Number: US-BAYER-2013-090285

PATIENT
  Sex: Male

DRUGS (1)
  1. FINACEA [Suspect]
     Dosage: UNK
     Route: 061

REACTIONS (1)
  - Acne [Not Recovered/Not Resolved]
